FAERS Safety Report 9260785 (Version 1)
Quarter: 2013Q2

REPORT INFORMATION
  Report Type: Spontaneous
  Country: IN (occurrence: IN)
  Receive Date: 20130429
  Receipt Date: 20130429
  Transmission Date: 20140414
  Serious: Yes (Other)
  Sender: FDA-Public Use
  Company Number: IN-MYLANLABS-2013S1008443

PATIENT
  Age: 52 Year
  Sex: Male

DRUGS (3)
  1. BUPROPION [Suspect]
     Indication: MAJOR DEPRESSION
     Route: 065
  2. VENLAFAXINE [Interacting]
     Indication: MAJOR DEPRESSION
     Dosage: 225 MG/DAY
     Route: 065
  3. CITALOPRAM [Concomitant]
     Indication: MAJOR DEPRESSION
     Dosage: 20 MG/DAY
     Route: 065

REACTIONS (6)
  - Anxiety [Unknown]
  - Agitation [Unknown]
  - Restlessness [Unknown]
  - Suicidal ideation [Unknown]
  - Blood pressure increased [Unknown]
  - Inhibitory drug interaction [Unknown]
